FAERS Safety Report 13423320 (Version 1)
Quarter: 2017Q2

REPORT INFORMATION
  Report Type: Spontaneous
  Country: US (occurrence: US)
  Receive Date: 20170410
  Receipt Date: 20170410
  Transmission Date: 20170830
  Serious: Yes (Hospitalization, Other)
  Sender: FDA-Public Use
  Company Number: None

PATIENT
  Age: 36 Year
  Sex: Female
  Weight: 55.35 kg

DRUGS (7)
  1. ATENOLOL. [Concomitant]
     Active Substance: ATENOLOL
  2. AMBIEN [Concomitant]
     Active Substance: ZOLPIDEM TARTRATE
  3. PREDNISONE. [Concomitant]
     Active Substance: PREDNISONE
  4. CYMBALTA [Suspect]
     Active Substance: DULOXETINE HYDROCHLORIDE
     Indication: FIBROMYALGIA
     Dosage: ?          QUANTITY:1 CAPSULE(S);?
     Route: 048
     Dates: start: 20170330, end: 20170331
  5. PLAQUENIL [Concomitant]
     Active Substance: HYDROXYCHLOROQUINE SULFATE
  6. VITAMIN D3 [Concomitant]
     Active Substance: CHOLECALCIFEROL
  7. TURMERIC [Concomitant]
     Active Substance: HERBALS\TURMERIC

REACTIONS (20)
  - Energy increased [None]
  - Tremor [None]
  - Urinary retention [None]
  - Nausea [None]
  - Hypersomnia [None]
  - Panic attack [None]
  - Euphoric mood [None]
  - Fatigue [None]
  - Feeling abnormal [None]
  - Palpitations [None]
  - Muscle rigidity [None]
  - Dystonia [None]
  - Fear of death [None]
  - Crying [None]
  - Depressed mood [None]
  - Emotional disorder [None]
  - Muscle twitching [None]
  - Decreased appetite [None]
  - Dysmorphism [None]
  - Hypertension [None]

NARRATIVE: CASE EVENT DATE: 20170401
